FAERS Safety Report 18521106 (Version 1)
Quarter: 2020Q4

REPORT INFORMATION
  Report Type: Spontaneous
  Country: US (occurrence: US)
  Receive Date: 20201118
  Receipt Date: 20201118
  Transmission Date: 20210114
  Serious: Yes (Death)
  Sender: FDA-Public Use
  Company Number: None

PATIENT
  Age: 73 Year
  Sex: Female

DRUGS (2)
  1. TICAGRELOR. [Suspect]
     Active Substance: TICAGRELOR
  2. ASPIRIN. [Suspect]
     Active Substance: ASPIRIN

REACTIONS (5)
  - Dizziness [None]
  - Cerebral haemorrhage [None]
  - Hypertension [None]
  - Pain [None]
  - Mental status changes [None]

NARRATIVE: CASE EVENT DATE: 20201007
